FAERS Safety Report 23814943 (Version 1)
Quarter: 2024Q2

REPORT INFORMATION
  Report Type: Spontaneous
  Country: CN (occurrence: CN)
  Receive Date: 20240503
  Receipt Date: 20240503
  Transmission Date: 20240716
  Serious: Yes (Other)
  Sender: FDA-Public Use
  Company Number: CN-ABBVIE-5743096

PATIENT
  Age: 39 Year
  Sex: Male

DRUGS (5)
  1. VENETOCLAX [Suspect]
     Active Substance: VENETOCLAX
     Indication: Acute lymphocytic leukaemia recurrent
     Dosage: DAY1
     Route: 048
  2. VENETOCLAX [Suspect]
     Active Substance: VENETOCLAX
     Indication: Acute lymphocytic leukaemia recurrent
     Dosage: DAY 2
     Route: 048
  3. VENETOCLAX [Suspect]
     Active Substance: VENETOCLAX
     Indication: Acute lymphocytic leukaemia recurrent
     Dosage: DAY 3-14
     Route: 048
  4. AZACITIDINE [Suspect]
     Active Substance: AZACITIDINE
     Indication: Acute lymphocytic leukaemia recurrent
     Dosage: DAY 1-7
     Route: 065
  5. BORTEZOMIB [Suspect]
     Active Substance: BORTEZOMIB
     Indication: Acute lymphocytic leukaemia recurrent
     Route: 065

REACTIONS (8)
  - Febrile neutropenia [Unknown]
  - Neutropenia [Unknown]
  - Drug ineffective [Unknown]
  - Renal impairment [Unknown]
  - Anaemia [Unknown]
  - Off label use [Unknown]
  - Thrombocytopenia [Unknown]
  - Agranulocytosis [Recovered/Resolved]
